FAERS Safety Report 6359703-4 (Version None)
Quarter: 2009Q3

REPORT INFORMATION
  Report Type: 
  Country: None (occurrence: None)
  Receive Date: 20090917
  Receipt Date: 20090902
  Transmission Date: 20100115
  Serious: Yes (Other)
  Sender: FDA-Public Use
  Company Number: GB-PFIZER INC-2009263182

PATIENT

DRUGS (1)
  1. NICOTINE [Suspect]
     Indication: DRUG USE FOR UNKNOWN INDICATION
     Dosage: 3 CARTIDGES PER DAY, 3X/DAY
     Route: 055
     Dates: start: 20050101

REACTIONS (5)
  - DEPENDENCE [None]
  - INTENTIONAL DRUG MISUSE [None]
  - ORAL PAIN [None]
  - OROPHARYNGEAL PAIN [None]
  - WRONG TECHNIQUE IN DRUG USAGE PROCESS [None]
